FAERS Safety Report 9790540 (Version 1)
Quarter: 2013Q4

REPORT INFORMATION
  Report Type: Spontaneous
  Country: US (occurrence: US)
  Receive Date: 20131231
  Receipt Date: 20131231
  Transmission Date: 20140711
  Serious: Yes (Other)
  Sender: FDA-Public Use
  Company Number: US-PFIZER INC-2013371788

PATIENT
  Sex: Female

DRUGS (2)
  1. MS CONTIN [Suspect]
  2. OXYCODONE HYDROCHLORIDE [Suspect]
     Dosage: UNK

REACTIONS (1)
  - Suicidal ideation [Unknown]
